FAERS Safety Report 23506156 (Version 13)
Quarter: 2024Q3

REPORT INFORMATION
  Report Type: Spontaneous
  Country: US (occurrence: US)
  Receive Date: 20240209
  Receipt Date: 20240830
  Transmission Date: 20241017
  Serious: Yes (Other)
  Sender: UNITED THERAPEUTICS
  Company Number: US-UNITED THERAPEUTICS-UNT-2024-003672

PATIENT
  Sex: Male
  Weight: 74.83 kg

DRUGS (28)
  1. TYVASO DPI [Suspect]
     Active Substance: TREPROSTINIL
     Indication: Pulmonary arterial hypertension
     Dosage: 16 ?G, QID
     Dates: start: 2024, end: 2024
  2. TYVASO DPI [Suspect]
     Active Substance: TREPROSTINIL
     Dosage: 32 ?G, QID
     Dates: start: 2024, end: 20240202
  3. TYVASO DPI [Suspect]
     Active Substance: TREPROSTINIL
     Dosage: 16 ?G, QID
     Dates: start: 20240202, end: 202402
  4. TYVASO DPI [Suspect]
     Active Substance: TREPROSTINIL
     Dosage: 32 ?G, QID
     Dates: start: 20240214, end: 202402
  5. TYVASO DPI [Suspect]
     Active Substance: TREPROSTINIL
     Dosage: 64 ?G
  6. TYVASO DPI [Suspect]
     Active Substance: TREPROSTINIL
     Dosage: 48 ?G, QID
     Dates: start: 202402, end: 2024
  7. TYVASO DPI [Suspect]
     Active Substance: TREPROSTINIL
     Dosage: 64 ?G, QID
     Dates: start: 2024, end: 2024
  8. TYVASO DPI [Suspect]
     Active Substance: TREPROSTINIL
     Dosage: 64 ?G, QID (16 ?G+ 48 ?G)
     Dates: start: 2024, end: 2024
  9. TYVASO DPI [Suspect]
     Active Substance: TREPROSTINIL
     Dosage: 32 ?G, QID
     Dates: start: 2024, end: 2024
  10. TYVASO DPI [Suspect]
     Active Substance: TREPROSTINIL
     Dosage: 64 ?G, QID
     Dates: start: 2024
  11. TYVASO DPI [Suspect]
     Active Substance: TREPROSTINIL
     Dosage: UNK
  12. TYVASO DPI [Suspect]
     Active Substance: TREPROSTINIL
     Indication: Pulmonary arterial hypertension
     Dosage: UNK
  13. TYVASO DPI [Suspect]
     Active Substance: TREPROSTINIL
     Indication: Pulmonary arterial hypertension
     Dosage: UNK
  14. TYVASO DPI [Suspect]
     Active Substance: TREPROSTINIL
     Indication: Pulmonary arterial hypertension
     Dosage: UNK
  15. TYVASO DPI [Suspect]
     Active Substance: TREPROSTINIL
     Indication: Pulmonary arterial hypertension
     Dosage: UNK
  16. INDOMETHACIN [Concomitant]
     Active Substance: INDOMETHACIN
     Indication: Product used for unknown indication
     Dosage: UNK
  17. TAMSULOSIN HYDROCHLORIDE [Concomitant]
     Active Substance: TAMSULOSIN HYDROCHLORIDE
     Indication: Product used for unknown indication
     Dosage: UNK
  18. ALLOPURINOL [Concomitant]
     Active Substance: ALLOPURINOL
     Indication: Product used for unknown indication
     Dosage: UNK
  19. VITAMIN D3 [Concomitant]
     Active Substance: CHOLECALCIFEROL
     Indication: Product used for unknown indication
     Dosage: UNK
  20. ALBUTEROL SULFATE [Concomitant]
     Active Substance: ALBUTEROL SULFATE
     Indication: Product used for unknown indication
     Dosage: UNK
  21. FLUTICASONE PROPIONATE\SALMETEROL XINAFOATE [Concomitant]
     Active Substance: FLUTICASONE PROPIONATE\SALMETEROL XINAFOATE
     Indication: Product used for unknown indication
     Dosage: UNK
  22. FLUTICASONE PROPIONATE [Concomitant]
     Active Substance: FLUTICASONE PROPIONATE
     Indication: Product used for unknown indication
     Dosage: UNK
  23. LISINOPRIL [Concomitant]
     Active Substance: LISINOPRIL
     Indication: Product used for unknown indication
     Dosage: UNK
  24. HERBALS\TURMERIC [Concomitant]
     Active Substance: HERBALS\TURMERIC
     Indication: Product used for unknown indication
     Dosage: UNK
  25. MUCINEX [Concomitant]
     Active Substance: GUAIFENESIN
     Indication: Product used for unknown indication
     Dosage: UNK
  26. JARDIANCE [Concomitant]
     Active Substance: EMPAGLIFLOZIN
     Indication: Blood glucose increased
     Dosage: UNK
  27. OXYGEN [Concomitant]
     Active Substance: OXYGEN
     Indication: Product used for unknown indication
     Dosage: 2 L
  28. OXYGEN [Concomitant]
     Active Substance: OXYGEN
     Dosage: 6 L

REACTIONS (41)
  - Oxygen saturation decreased [Unknown]
  - Pneumonia [Unknown]
  - Dyspnoea exertional [Unknown]
  - Chest discomfort [Recovered/Resolved]
  - Chest pain [Recovered/Resolved]
  - Muscle strain [Recovered/Resolved]
  - Dyspnoea [Unknown]
  - Heart rate increased [Recovered/Resolved]
  - Choking sensation [Unknown]
  - Blood glucose increased [Unknown]
  - Irritable bowel syndrome [Unknown]
  - Abdominal discomfort [Unknown]
  - Dizziness [Recovering/Resolving]
  - Taste disorder [Unknown]
  - Weight decreased [Unknown]
  - Abdominal pain upper [Unknown]
  - Muscular weakness [Unknown]
  - Flushing [Unknown]
  - Cough [Recovering/Resolving]
  - Blood pressure decreased [Unknown]
  - Exercise tolerance decreased [Recovering/Resolving]
  - Heart rate decreased [Unknown]
  - Rhinorrhoea [Unknown]
  - Euphoric mood [Unknown]
  - Retching [Unknown]
  - Vertigo [Unknown]
  - Asthma [Unknown]
  - Joint injury [Unknown]
  - Gout [Unknown]
  - Brain fog [Unknown]
  - Hangover [Unknown]
  - Dizziness postural [Unknown]
  - Productive cough [Unknown]
  - Dysphagia [Unknown]
  - Drug tolerance decreased [Recovering/Resolving]
  - Sinus disorder [Unknown]
  - Nasopharyngitis [Not Recovered/Not Resolved]
  - Sneezing [Not Recovered/Not Resolved]
  - Oropharyngeal pain [Not Recovered/Not Resolved]
  - Therapy non-responder [Unknown]
  - Intentional dose omission [Recovered/Resolved]

NARRATIVE: CASE EVENT DATE: 20240101
